FAERS Safety Report 8797140 (Version 2)
Quarter: 2012Q4

REPORT INFORMATION
  Report Type: 
  Country: JP (occurrence: JP)
  Receive Date: 20120919
  Receipt Date: 20121026
  Transmission Date: 20130627
  Serious: Yes (Death)
  Sender: FDA-Public Use
  Company Number: JP-ROCHE-1124537

PATIENT
  Sex: Male
  Weight: 63 kg

DRUGS (11)
  1. AVASTIN [Suspect]
     Indication: COLON CANCER RECURRENT
     Route: 041
     Dates: start: 20120904, end: 20120904
  2. XELODA [Suspect]
     Indication: COLON CANCER RECURRENT
     Route: 048
     Dates: start: 20120904, end: 20120904
  3. CODEINE PHOSPHATE [Concomitant]
     Indication: COUGH
     Dosage: For ton
     Route: 048
     Dates: start: 20120830
  4. ASVERIN (TIPEPIDINE HIBENZATE) [Concomitant]
     Indication: COUGH
     Route: 048
     Dates: start: 20101130
  5. TAKEPRON [Concomitant]
     Indication: GASTROINTESTINAL DISORDER
     Route: 048
     Dates: start: 20101130
  6. LOXONIN [Concomitant]
     Indication: PAIN
     Route: 048
     Dates: start: 20101110
  7. MUCOSTA [Concomitant]
     Indication: GASTRITIS
     Route: 048
     Dates: start: 20101110
  8. RINDERON [Concomitant]
     Indication: DECREASED APPETITE
     Route: 048
  9. OXYCONTIN [Concomitant]
     Indication: PAIN
     Route: 048
     Dates: start: 20120830
  10. OXINORM (JAPAN) [Concomitant]
     Indication: PAIN
     Dosage: For ton
     Route: 048
     Dates: start: 20120830
  11. HOKUNALIN [Concomitant]
     Dosage: Dosage is uncertain.
     Route: 062

REACTIONS (2)
  - Haemoptysis [Fatal]
  - Hypovolaemic shock [Fatal]
